FAERS Safety Report 9095473 (Version 1)
Quarter: 2013Q1

REPORT INFORMATION
  Report Type: Spontaneous
  Country: US (occurrence: None)
  Receive Date: 20130124
  Receipt Date: 20130124
  Transmission Date: 20140127
  Serious: Yes (Hospitalization)
  Sender: FDA-Public Use
  Company Number: ACO_33842_2013

PATIENT
  Age: 53 Year
  Sex: Male

DRUGS (8)
  1. AMPYRA (DALFAMPRIDINE) TABLET, 10MG [Suspect]
     Indication: GAIT DISTURBANCE
     Dates: start: 2012, end: 20130111
  2. NEURONTIN (GABAPENTIN) [Concomitant]
  3. LYRICA (PREGABALIN) [Concomitant]
  4. ABILIFY (ARIPIPRAZOLE) [Concomitant]
  5. CELEXA (CITALOPRAM HYDROBROMIDE) [Concomitant]
  6. BACLOFEN (BACLOFEN) [Concomitant]
  7. LAMICTAL (LAMOTRIGINE) [Concomitant]
  8. ALL OTHER THERAPEUTIC PRODUCTS [Concomitant]

REACTIONS (3)
  - Musculoskeletal stiffness [None]
  - Movement disorder [None]
  - Muscle spasticity [None]
